FAERS Safety Report 6758210-4 (Version None)
Quarter: 2010Q2

REPORT INFORMATION
  Report Type: 
  Country: None (occurrence: None)
  Receive Date: 20100524
  Receipt Date: 20100405
  Transmission Date: 20101027
  Serious: No
  Sender: FDA-Public Use
  Company Number: 009814

PATIENT
  Sex: Female
  Weight: 46.2 kg

DRUGS (11)
  1. CIMZIA [Suspect]
     Indication: CROHN'S DISEASE
     Dosage: SUBCUTANEOUS
     Route: 058
     Dates: start: 20091201, end: 20100323
  2. TRAZODONE HYDROCHLORIDE [Concomitant]
  3. PHENERAN [Concomitant]
  4. ATIVAN [Concomitant]
  5. LORATADINE [Concomitant]
  6. DAILY MULTIVITAMIN [Concomitant]
  7. VITAMIN B12 [Concomitant]
  8. CELEXA [Concomitant]
  9. SOMA [Concomitant]
  10. LOMOTIL [Concomitant]
  11. CALCIUM WITH VITAMIN D [Concomitant]

REACTIONS (4)
  - HAEMORRHAGE [None]
  - PAIN [None]
  - SCAB [None]
  - SKIN LESION [None]
